FAERS Safety Report 8409922 (Version 1)
Quarter: 2012Q4

REPORT INFORMATION
  Report Type: 
  Country: NO (occurrence: NO)
  Receive Date: 20120828
  Receipt Date: 20120828
  Transmission Date: 20130627
  Serious: Yes (Hospitalization)
  Sender: FDA-Public Use
  Company Number: NO-BAXTER-2012BH004121

PATIENT
  Sex: Male

DRUGS (2)
  1. KIOVIG [Suspect]
     Indication: EATON-LAMBERT SYNDROME
     Route: 042
     Dates: start: 20120121, end: 20120123
  2. KIOVIG [Suspect]
     Indication: INTENTIONAL USE FOR UNLABELED INDICATION

REACTIONS (1)
  - Haemoglobin decreased [Unknown]
